FAERS Safety Report 12364607 (Version 1)
Quarter: 2016Q2

REPORT INFORMATION
  Report Type: Spontaneous
  Country: US (occurrence: None)
  Receive Date: 20160512
  Receipt Date: 20160512
  Transmission Date: 20160815
  Serious: No
  Sender: FDA-Public Use
  Company Number: None

PATIENT
  Age: 49 Year
  Sex: Male
  Weight: 83.92 kg

DRUGS (1)
  1. NEUPRO [Suspect]
     Active Substance: ROTIGOTINE
     Indication: RESTLESS LEGS SYNDROME
     Route: 062
     Dates: start: 20160503, end: 20160511

REACTIONS (3)
  - Incorrect dose administered by device [None]
  - Drug ineffective [None]
  - Product adhesion issue [None]

NARRATIVE: CASE EVENT DATE: 20160504
